FAERS Safety Report 19415680 (Version 1)
Quarter: 2021Q2

REPORT INFORMATION
  Report Type: Spontaneous
  Country: US (occurrence: US)
  Receive Date: 20210615
  Receipt Date: 20210615
  Transmission Date: 20210717
  Serious: No
  Sender: FDA-Public Use
  Company Number: US-ALLERGAN-2036383US

PATIENT
  Age: 42 Year
  Sex: Female

DRUGS (2)
  1. KYBELLA [Suspect]
     Active Substance: DEOXYCHOLIC ACID
     Indication: LIPOLYSIS PROCEDURE
     Dosage: 2 VIALS, SINGLE
     Route: 058
     Dates: start: 20200521, end: 20200521
  2. DHEA [Concomitant]
     Active Substance: PRASTERONE
     Indication: HORMONE THERAPY

REACTIONS (3)
  - Injection site induration [Not Recovered/Not Resolved]
  - Inflammation [Not Recovered/Not Resolved]
  - Swelling [Not Recovered/Not Resolved]

NARRATIVE: CASE EVENT DATE: 20200521
